FAERS Safety Report 6652030-7 (Version None)
Quarter: 2010Q1

REPORT INFORMATION
  Report Type: 
  Country: None (occurrence: None)
  Receive Date: 20100325
  Receipt Date: 20090126
  Transmission Date: 20100710
  Serious: Yes (Hospitalization)
  Sender: FDA-Public Use
  Company Number: US-SANOFI-AVENTIS-F01200801707

PATIENT
  Age: 61 Year
  Sex: Male
  Weight: 72.6 kg

DRUGS (15)
  1. OXALIPLATIN [Suspect]
     Dosage: UNIT DOSE: 100 MG/M2
     Route: 042
     Dates: start: 20081029, end: 20081029
  2. DOCETAXEL [Suspect]
     Dosage: UNIT DOSE: 70 MG/M2
     Route: 042
     Dates: start: 20081029, end: 20081029
  3. BEVACIZUMAB [Suspect]
     Dosage: UNIT DOSE: 15 MG/KG
     Route: 042
     Dates: start: 20081029, end: 20081029
  4. NEXIUM /UNK/ [Concomitant]
     Route: 048
  5. MULTI-VITAMINS [Concomitant]
  6. VITAMIN E [Concomitant]
  7. TYLENOL-500 [Concomitant]
  8. IMODIUM [Concomitant]
  9. KYTRIL [Concomitant]
  10. COMPAZINE [Concomitant]
  11. ZOFRAN [Concomitant]
  12. LOPRESSOR [Concomitant]
  13. TOPROL-XL [Concomitant]
  14. GRAPE SEED EXTRACT [Concomitant]
  15. CAMELLIA SINENSIS [Concomitant]

REACTIONS (2)
  - ATRIAL FIBRILLATION [None]
  - DIARRHOEA [None]
